FAERS Safety Report 6241718-8 (Version None)
Quarter: 2009Q2

REPORT INFORMATION
  Report Type: 
  Country: None (occurrence: None)
  Receive Date: 20090623
  Receipt Date: 20090619
  Transmission Date: 20091009
  Serious: Yes (Hospitalization)
  Sender: FDA-Public Use
  Company Number: FR-WYE-G03113709

PATIENT
  Sex: Male
  Weight: 68 kg

DRUGS (3)
  1. TORISEL [Suspect]
     Indication: METASTATIC RENAL CELL CARCINOMA
     Route: 042
     Dates: start: 20081216
  2. TRIATEC [Concomitant]
     Indication: HYPERTENSION
     Route: 048
     Dates: start: 20090127
  3. AVASTIN [Suspect]
     Indication: METASTATIC RENAL CELL CARCINOMA
     Dosage: UNKNOWN
     Route: 042
     Dates: start: 20081216

REACTIONS (2)
  - ABDOMINAL PAIN [None]
  - CONSTIPATION [None]
